FAERS Safety Report 11634359 (Version 1)
Quarter: 2015Q4

REPORT INFORMATION
  Report Type: Spontaneous
  Country: US (occurrence: US)
  Receive Date: 20151015
  Receipt Date: 20151015
  Transmission Date: 20160304
  Serious: No
  Sender: FDA-Public Use
  Company Number: US-BAYER-2015-443496

PATIENT
  Age: 80 Year
  Sex: Female
  Weight: 52.15 kg

DRUGS (5)
  1. CELEBREX [Concomitant]
     Active Substance: CELECOXIB
  2. LOSARTAN. [Concomitant]
     Active Substance: LOSARTAN
  3. BAYER EXTRA STRENGTH ASPIRIN [Suspect]
     Active Substance: ASPIRIN
     Indication: MYALGIA
     Dosage: 2 DF, BID
     Route: 048
  4. BAYER ADVANCED ASPIRIN REGULAR STRENGTH [Suspect]
     Active Substance: ASPIRIN
     Indication: MYALGIA
     Dosage: 2 DF, BID
     Route: 048
  5. ALEVE [Suspect]
     Active Substance: NAPROXEN SODIUM
     Indication: MYALGIA
     Dosage: 2 DF, BID
     Route: 048

REACTIONS (2)
  - Drug ineffective [None]
  - Product use issue [None]
